FAERS Safety Report 9109422 (Version 1)
Quarter: 2013Q1

REPORT INFORMATION
  Report Type: Spontaneous
  Country: FR (occurrence: FR)
  Receive Date: 20130222
  Receipt Date: 20130222
  Transmission Date: 20140127
  Serious: Yes (Other)
  Sender: FDA-Public Use
  Company Number: FR-B.I. PHARMACEUTICALS,INC./RIDGEFIELD-2013-FF-00530FF

PATIENT
  Age: 78 Year
  Sex: Female
  Weight: 84 kg

DRUGS (2)
  1. PRADAXA [Suspect]
     Indication: THROMBOSIS PROPHYLAXIS
     Dosage: 220 MG
     Route: 048
     Dates: start: 2012
  2. KARDEGIC [Concomitant]
     Indication: CEREBROVASCULAR ACCIDENT

REACTIONS (2)
  - Deep vein thrombosis [Unknown]
  - Pain in extremity [Unknown]
